FAERS Safety Report 16665685 (Version 1)
Quarter: 2019Q3

REPORT INFORMATION
  Report Type: Spontaneous
  Country: US (occurrence: US)
  Receive Date: 20190804
  Receipt Date: 20190804
  Transmission Date: 20191004
  Serious: Yes (Other)
  Sender: FDA-Public Use
  Company Number: US-ABBVIE-19S-163-2683569-00

PATIENT
  Sex: Male

DRUGS (2)
  1. DEPAKOTE [Suspect]
     Active Substance: DIVALPROEX SODIUM
     Indication: EPILEPSY
     Route: 065
     Dates: start: 2013
  2. DIVALPROEX DR [Suspect]
     Active Substance: DIVALPROEX SODIUM
     Indication: EPILEPSY
     Route: 065
     Dates: start: 2013, end: 2013

REACTIONS (2)
  - Drug ineffective [Not Recovered/Not Resolved]
  - Seizure [Recovering/Resolving]

NARRATIVE: CASE EVENT DATE: 2013
